FAERS Safety Report 5244536-2 (Version None)
Quarter: 2007Q1

REPORT INFORMATION
  Report Type: 
  Country: None (occurrence: None)
  Receive Date: 20070222
  Receipt Date: 20070212
  Transmission Date: 20070707
  Serious: Yes (Hospitalization)
  Sender: FDA-Public Use
  Company Number: FR-SANOFI-SYNTHELABO-A02200700450

PATIENT
  Age: 73 Year
  Sex: Male

DRUGS (3)
  1. LEVOCARNYL [Concomitant]
     Dosage: 3 DF
     Route: 065
     Dates: start: 20061009
  2. ZOLOFT [Suspect]
     Indication: DRUG USE FOR UNKNOWN INDICATION
     Route: 048
     Dates: start: 20061009
  3. DANATROL [Suspect]
     Indication: DRUG USE FOR UNKNOWN INDICATION
     Route: 048
     Dates: start: 20061009, end: 20070109

REACTIONS (1)
  - ANGINA UNSTABLE [None]
